FAERS Safety Report 6982059-0 (Version None)
Quarter: 2010Q3

REPORT INFORMATION
  Report Type: 
  Country: None (occurrence: None)
  Receive Date: 20100914
  Receipt Date: 20091130
  Transmission Date: 20110219
  Serious: No
  Sender: FDA-Public Use
  Company Number: US-PFIZER INC-2009281799

PATIENT
  Age: 82 Year
  Sex: Male

DRUGS (2)
  1. LYRICA [Suspect]
     Dosage: 200 MG/DAY
  2. LASIX [Concomitant]
     Indication: VENOUS INSUFFICIENCY

REACTIONS (2)
  - AMNESIA [None]
  - COGNITIVE DISORDER [None]
